FAERS Safety Report 11128345 (Version 1)
Quarter: 2015Q2

REPORT INFORMATION
  Report Type: Spontaneous
  Country: None (occurrence: None)
  Receive Date: 20150520
  Receipt Date: 20150520
  Transmission Date: 20150821
  Serious: No
  Sender: FDA-Public Use
  Company Number: None

PATIENT
  Age: 51 Year
  Sex: Female

DRUGS (1)
  1. IBRANCE [Suspect]
     Active Substance: PALBOCICLIB

REACTIONS (11)
  - Muscle spasms [None]
  - Fatigue [None]
  - Feeling hot [None]
  - Panic attack [None]
  - Pruritus [None]
  - Activities of daily living impaired [None]
  - White blood cell count decreased [None]
  - Pain of skin [None]
  - Pain in extremity [None]
  - Depressed mood [None]
  - Hyperhidrosis [None]
